FAERS Safety Report 20947778 (Version 1)
Quarter: 2022Q2

REPORT INFORMATION
  Report Type: Spontaneous
  Country: US (occurrence: US)
  Receive Date: 20220611
  Receipt Date: 20220611
  Transmission Date: 20220720
  Serious: No
  Sender: FDA-Public Use
  Company Number: US-JNJFOC-20220607499

PATIENT
  Age: 46 Year
  Sex: Female
  Weight: 104.42 kg

DRUGS (1)
  1. REMICADE [Suspect]
     Active Substance: INFLIXIMAB
     Indication: Crohn^s disease
     Route: 042

REACTIONS (2)
  - Product dose omission issue [Unknown]
  - Device placement issue [Unknown]

NARRATIVE: CASE EVENT DATE: 20220602
